FAERS Safety Report 17255438 (Version 1)
Quarter: 2020Q1

REPORT INFORMATION
  Report Type: Spontaneous
  Country: US (occurrence: US)
  Receive Date: 20200110
  Receipt Date: 20200110
  Transmission Date: 20200409
  Serious: No
  Sender: FDA-Public Use
  Company Number: US-JNJFOC-20191248494

PATIENT
  Sex: Female
  Weight: 95.34 kg

DRUGS (1)
  1. TYLENOL EXTRA STRENGTH [Suspect]
     Active Substance: ACETAMINOPHEN
     Indication: PYREXIA
     Dosage: 2 CAPLET TWICE EVEY 6 HOURS
     Route: 048
     Dates: start: 20191230, end: 20191230

REACTIONS (1)
  - Dizziness [Recovered/Resolved]
